FAERS Safety Report 11060226 (Version 2)
Quarter: 2015Q3

REPORT INFORMATION
  Report Type: Report from Study
  Country: US (occurrence: US)
  Receive Date: 20150423
  Receipt Date: 20150724
  Transmission Date: 20151125
  Serious: Yes (Death, Hospitalization, Other)
  Sender: FDA-Public Use
  Company Number: US-AMGEN-USASL2015027629

PATIENT
  Age: 52 Year
  Sex: Male

DRUGS (1)
  1. KYPROLIS [Suspect]
     Active Substance: CARFILZOMIB
     Indication: PLASMA CELL MYELOMA
     Dosage: UNK, 2 TIMES/WK
     Route: 042
     Dates: start: 201502

REACTIONS (9)
  - Death [Fatal]
  - Cardiac arrest [Unknown]
  - Pneumonia [Recovering/Resolving]
  - Blood pressure immeasurable [Unknown]
  - Gastrointestinal haemorrhage [Unknown]
  - Neck pain [Recovering/Resolving]
  - Fall [Unknown]
  - Pulse abnormal [Unknown]
  - Mobility decreased [Unknown]

NARRATIVE: CASE EVENT DATE: 2015
